FAERS Safety Report 8266646 (Version 2)
Quarter: 2012Q4

REPORT INFORMATION
  Report Type: 
  Country: US (occurrence: US)
  Receive Date: 20111129
  Receipt Date: 20121129
  Transmission Date: 20130627
  Serious: No
  Sender: FDA-Public Use
  Company Number: US-GLAXOSMITHKLINE-A0946067A

PATIENT
  Age: 59 Year
  Sex: Female

DRUGS (2)
  1. WELLBUTRIN SR [Suspect]
     Indication: PRODUCT USED FOR UNKNOWN INDICATION
     Dosage: 150MG Per day
     Route: 065
     Dates: start: 20081205, end: 20110615
  2. XANAX [Concomitant]

REACTIONS (4)
  - Nerve injury [Unknown]
  - Tooth injury [Unknown]
  - Dry mouth [Recovered/Resolved]
  - Tooth disorder [Recovered/Resolved]
